FAERS Safety Report 5482581-2 (Version None)
Quarter: 2007Q4

REPORT INFORMATION
  Report Type: 
  Country: None (occurrence: None)
  Receive Date: 20071011
  Receipt Date: 20070718
  Transmission Date: 20080405
  Serious: No
  Sender: FDA-Public Use
  Company Number: A0664853A

PATIENT
  Age: 75 Year
  Sex: Female

DRUGS (4)
  1. TYKERB [Suspect]
     Indication: BREAST CANCER
     Dosage: 1250MG PER DAY
     Route: 048
     Dates: start: 20070625, end: 20070711
  2. XELODA [Concomitant]
  3. ZOLOFT [Concomitant]
  4. LYRICA [Concomitant]

REACTIONS (1)
  - DIARRHOEA [None]
